FAERS Safety Report 19765530 (Version 1)
Quarter: 2021Q3

REPORT INFORMATION
  Report Type: Spontaneous
  Country: CN (occurrence: CN)
  Receive Date: 20210830
  Receipt Date: 20210830
  Transmission Date: 20211014
  Serious: Yes (Hospitalization)
  Sender: FDA-Public Use
  Company Number: CN-PFIZER INC-202101065304

PATIENT
  Age: 64 Year
  Sex: Male
  Weight: 65 kg

DRUGS (6)
  1. PIPERACILLIN/TAZOBACTAM [Suspect]
     Active Substance: PIPERACILLIN SODIUM\TAZOBACTAM SODIUM
     Indication: ANTI-INFECTIVE THERAPY
     Dosage: 4.5 G, 2X/DAY (EVERY 12 HOURS)
     Route: 041
     Dates: start: 20210224, end: 20210316
  2. SODIUM CHLORIDE. [Concomitant]
     Active Substance: SODIUM CHLORIDE
     Dosage: 250 ML, 1X/DAY
     Route: 041
     Dates: start: 20210220, end: 20210304
  3. ETIMICIN SULFATE [Suspect]
     Active Substance: ETIMICIN SULFATE
     Indication: ANTI-INFECTIVE THERAPY
     Dosage: 200 MG, 1X/DAY
     Route: 041
     Dates: start: 20210220, end: 20210304
  4. KEFADIM [Suspect]
     Active Substance: CEFTAZIDIME
     Indication: ANTI-INFECTIVE THERAPY
     Dosage: 1 G, 2X/DAY (EVERY 12 HOURS)
     Route: 041
     Dates: start: 20210220, end: 20210224
  5. SODIUM CHLORIDE. [Concomitant]
     Active Substance: SODIUM CHLORIDE
     Dosage: 100 ML, 2X/DAY (EVERY 12 HOURS)
     Route: 041
     Dates: start: 20210224, end: 20210316
  6. SODIUM CHLORIDE. [Concomitant]
     Active Substance: SODIUM CHLORIDE
     Indication: VEHICLE SOLUTION USE
     Dosage: 100 ML, 2X/DAY
     Route: 041
     Dates: start: 20210220, end: 20210224

REACTIONS (1)
  - Hepatic function abnormal [Not Recovered/Not Resolved]

NARRATIVE: CASE EVENT DATE: 20210308
